FAERS Safety Report 25763653 (Version 1)
Quarter: 2025Q3

REPORT INFORMATION
  Report Type: Spontaneous
  Country: US (occurrence: US)
  Receive Date: 20250905
  Receipt Date: 20250905
  Transmission Date: 20251020
  Serious: No
  Sender: DOMPE FARMACEUTICI
  Company Number: US-FARMAPROD-202410-3647

PATIENT
  Sex: Female

DRUGS (9)
  1. OXERVATE [Suspect]
     Active Substance: CENEGERMIN-BKBJ
     Indication: Neurotrophic keratopathy
     Route: 047
     Dates: start: 20240925
  2. MOUNJARO [Concomitant]
     Active Substance: TIRZEPATIDE
  3. SYSTANE (HYPROMELLOSE 2910 (4000 MPA.S)) [Concomitant]
     Active Substance: HYPROMELLOSE 2910 (4000 MPA.S)
  4. MURO 128 [Concomitant]
     Active Substance: SODIUM CHLORIDE
  5. VEVYE [Concomitant]
     Active Substance: CYCLOSPORINE
  6. GABAPENTIN [Concomitant]
     Active Substance: GABAPENTIN
  7. ANASTROZOLE [Concomitant]
     Active Substance: ANASTROZOLE
  8. CALCIUM [Concomitant]
     Active Substance: CALCIUM
  9. HYDROXYCHLOROQUINE SULFATE [Concomitant]
     Active Substance: HYDROXYCHLOROQUINE SULFATE

REACTIONS (4)
  - Periorbital pain [Not Recovered/Not Resolved]
  - Eye irritation [Not Recovered/Not Resolved]
  - Eye pain [Not Recovered/Not Resolved]
  - Facial pain [Not Recovered/Not Resolved]
